FAERS Safety Report 22520251 (Version 7)
Quarter: 2024Q1

REPORT INFORMATION
  Report Type: Report from Study
  Country: US (occurrence: US)
  Receive Date: 20230605
  Receipt Date: 20240109
  Transmission Date: 20240410
  Serious: Yes (Hospitalization)
  Sender: FDA-Public Use
  Company Number: US-ABBVIE-5188676

PATIENT
  Sex: Female
  Weight: 81.646 kg

DRUGS (1)
  1. SKYRIZI [Suspect]
     Active Substance: RISANKIZUMAB-RZAA
     Indication: Psoriasis
     Route: 058

REACTIONS (5)
  - Pneumonia [Unknown]
  - Sinusitis [Recovering/Resolving]
  - Lung disorder [Unknown]
  - Chronic obstructive pulmonary disease [Unknown]
  - Food poisoning [Unknown]

NARRATIVE: CASE EVENT DATE: 20180101
